FAERS Safety Report 16964798 (Version 1)
Quarter: 2019Q4

REPORT INFORMATION
  Report Type: Spontaneous
  Country: US (occurrence: US)
  Receive Date: 20191028
  Receipt Date: 20191028
  Transmission Date: 20200122
  Serious: No
  Sender: FDA-Public Use
  Company Number: US-ALLERGAN-1906577US

PATIENT

DRUGS (1)
  1. INFED [Suspect]
     Active Substance: IRON DEXTRAN
     Indication: PRODUCT USED FOR UNKNOWN INDICATION

REACTIONS (1)
  - Product administration error [Unknown]
